FAERS Safety Report 5673756-8 (Version None)
Quarter: 2008Q2

REPORT INFORMATION
  Report Type: 
  Country: None (occurrence: None)
  Receive Date: 20080225
  Receipt Date: 20070615
  Transmission Date: 20081010
  Serious: Yes (Hospitalization)
  Sender: FDA-Public Use
  Company Number: WAES 0706USA02732

PATIENT
  Age: 82 Year
  Sex: Female
  Weight: 58.9676 kg

DRUGS (4)
  1. ZOCOR [Suspect]
     Indication: BLOOD CHOLESTEROL INCREASED
     Dosage: 20 MG/DAILY/PO ; 20 MG/DAILY/PO
     Route: 047
     Dates: start: 20070227, end: 20070309
  2. ZOCOR [Suspect]
     Indication: BLOOD CHOLESTEROL INCREASED
     Dosage: 20 MG/DAILY/PO ; 20 MG/DAILY/PO
     Route: 047
     Dates: start: 20070410, end: 20070401
  3. PREVACID [Concomitant]
  4. SYNTHROID [Concomitant]

REACTIONS (1)
  - MYALGIA [None]
